FAERS Safety Report 15540864 (Version 2)
Quarter: 2018Q4

REPORT INFORMATION
  Report Type: Spontaneous
  Country: US (occurrence: US)
  Receive Date: 20181023
  Receipt Date: 20181023
  Transmission Date: 20190205
  Serious: Yes (Other)
  Sender: FDA-Public Use
  Company Number: PHHY2018US128008

PATIENT
  Age: 40 Year
  Sex: Female

DRUGS (6)
  1. CICLOSPORIN [Suspect]
     Active Substance: CYCLOSPORINE
     Indication: STEM CELL TRANSPLANT
     Route: 065
  2. CICLOSPORIN [Suspect]
     Active Substance: CYCLOSPORINE
     Indication: IMMUNOSUPPRESSANT DRUG THERAPY
  3. FILGRASTIM [Suspect]
     Active Substance: FILGRASTIM
     Dosage: 5 UG/KG, QD
     Route: 065
  4. ANTITHYMOCYTE IMMUNOGLOBULIN [Concomitant]
     Active Substance: THYMOCYTE IMMUNE GLOBULIN NOS
     Indication: BONE MARROW CONDITIONING REGIMEN
     Dosage: UNK
     Route: 065
  5. CYCLOPHOSPHAMIDE. [Concomitant]
     Active Substance: CYCLOPHOSPHAMIDE
     Indication: BONE MARROW CONDITIONING REGIMEN
     Dosage: 200 MG/KG, UNK
     Route: 065
  6. FILGRASTIM [Suspect]
     Active Substance: FILGRASTIM
     Indication: PANCYTOPENIA
     Dosage: 300 UG, QD
     Route: 065

REACTIONS (10)
  - Bone marrow failure [Unknown]
  - Erythema [Unknown]
  - Inflammation [Unknown]
  - Pyrexia [Unknown]
  - Swelling [Unknown]
  - Extravasation blood [Unknown]
  - Pseudomonas infection [Unknown]
  - Oedema [Unknown]
  - Drug ineffective [Unknown]
  - Hypertension [Unknown]
